FAERS Safety Report 5727965-X (Version None)
Quarter: 2008Q2

REPORT INFORMATION
  Report Type: 
  Country: None (occurrence: None)
  Receive Date: 20080505
  Receipt Date: 20080313
  Transmission Date: 20081010
  Serious: No
  Sender: FDA-Public Use
  Company Number: US-BOEHRINGER INGELHEIM GMBH, GERMANY-2008-BP-03881BP

PATIENT
  Age: 42 Year
  Sex: Male
  Weight: 175 kg

DRUGS (1)
  1. MIRAPEX [Suspect]
     Indication: RESTLESS LEGS SYNDROME
     Dates: start: 20071120, end: 20080115

REACTIONS (4)
  - CHEST PAIN [None]
  - EYE PRURITUS [None]
  - LACRIMATION INCREASED [None]
  - PERIORBITAL OEDEMA [None]
